FAERS Safety Report 13205786 (Version 3)
Quarter: 2017Q1

REPORT INFORMATION
  Report Type: Spontaneous
  Country: JP (occurrence: JP)
  Receive Date: 20170209
  Receipt Date: 20170328
  Transmission Date: 20170428
  Serious: Yes (Hospitalization)
  Sender: FDA-Public Use
  Company Number: JP-BIOCRYST PHARMACEUTICALS, INC.-2017BCR00027

PATIENT
  Age: 86 Year
  Sex: Female

DRUGS (11)
  1. SULBACILLIN [Concomitant]
     Active Substance: AMPICILLIN SODIUM\SULBACTAM SODIUM
     Indication: PNEUMONIA
     Dosage: 6.0 G, 1X/DAY
     Route: 042
     Dates: start: 20170111, end: 20170123
  2. SAMSCA [Concomitant]
     Active Substance: TOLVAPTAN
     Indication: ACUTE KIDNEY INJURY
  3. RAPIACTA [Suspect]
     Active Substance: PERAMIVIR
     Indication: INFLUENZA
     Dosage: 150 MG, UNK
     Route: 042
     Dates: start: 20170106, end: 20170107
  4. FUROSEMIDE. [Concomitant]
     Active Substance: FUROSEMIDE
     Indication: ACUTE KIDNEY INJURY
  5. SAMSCA [Concomitant]
     Active Substance: TOLVAPTAN
     Indication: CARDIAC FAILURE CONGESTIVE
     Dosage: 7.5 MG, 1X/DAY
     Route: 048
     Dates: start: 20170115, end: 20170116
  6. SPIRONOLACTONE. [Concomitant]
     Active Substance: SPIRONOLACTONE
     Indication: CARDIAC FAILURE CONGESTIVE
     Dosage: 25 MG, 1X/DAY
     Dates: start: 20170106
  7. INOVAN [Concomitant]
     Active Substance: DOPAMINE HYDROCHLORIDE
     Indication: ACUTE KIDNEY INJURY
  8. HANP [Concomitant]
     Active Substance: CARPERITIDE
     Indication: CARDIAC FAILURE CONGESTIVE
     Dosage: 2000 ?G, 1X/DAY
     Dates: start: 20170106, end: 20170111
  9. FUROSEMIDE. [Concomitant]
     Active Substance: FUROSEMIDE
     Indication: CARDIAC FAILURE CONGESTIVE
     Dosage: 10 MG, 1X/DAY
     Route: 042
     Dates: start: 20170109, end: 20170116
  10. INOVAN [Concomitant]
     Active Substance: DOPAMINE HYDROCHLORIDE
     Indication: CARDIAC FAILURE CONGESTIVE
     Dosage: 300 MG, 1X/DAY
     Route: 042
     Dates: start: 20170115, end: 20170118
  11. AZOSEMIDE [Concomitant]
     Active Substance: AZOSEMIDE
     Indication: CARDIAC FAILURE CONGESTIVE
     Dosage: 60 MG, 1X/DAY
     Route: 048
     Dates: start: 20170106

REACTIONS (3)
  - Pneumonia [Recovered/Resolved]
  - Hepatic function abnormal [Recovered/Resolved]
  - Acute kidney injury [Recovered/Resolved]

NARRATIVE: CASE EVENT DATE: 20170111
